FAERS Safety Report 10229684 (Version 1)
Quarter: 2014Q2

REPORT INFORMATION
  Report Type: Report from Study
  Country: US (occurrence: US)
  Receive Date: 20140611
  Receipt Date: 20140611
  Transmission Date: 20141212
  Serious: Yes (Other)
  Sender: FDA-Public Use
  Company Number: PHEH2014US010988

PATIENT
  Sex: Female
  Weight: 115 kg

DRUGS (11)
  1. TOBI [Suspect]
     Dosage: UNK UKN, UNK
     Route: 055
     Dates: start: 2013
  2. TOBI [Suspect]
     Dosage: UNK UKN, UNK
  3. NEXUM [Concomitant]
     Dosage: UNK UKN, UNK
  4. BACTRIM [Concomitant]
     Dosage: UNK UKN, UNK
  5. AZITHROMYCIN [Concomitant]
     Dosage: UNK UKN, UNK
  6. SINGULAIR [Concomitant]
     Dosage: UNK UKN, UNK
  7. ALLEGRA [Concomitant]
     Dosage: UNK UKN, UNK
  8. CREON [Concomitant]
     Dosage: UNK UKN, UNK
  9. ALBUTEROL [Concomitant]
     Dosage: UNK UKN, UNK
  10. PULMOZYME [Concomitant]
     Dosage: UNK UKN, UNK
  11. PREDNISONE [Concomitant]
     Dosage: UNK UKN, UNK

REACTIONS (3)
  - Pseudomonas infection [Unknown]
  - Dysphonia [Recovered/Resolved]
  - Oropharyngeal pain [Recovered/Resolved]
